FAERS Safety Report 10814554 (Version 1)
Quarter: 2015Q1

REPORT INFORMATION
  Report Type: Report from Study
  Country: US (occurrence: US)
  Receive Date: 20150218
  Receipt Date: 20150218
  Transmission Date: 20150721
  Serious: No
  Sender: FDA-Public Use
  Company Number: US-ABBVIE-14K-163-1277380-00

PATIENT
  Age: 54 Year
  Sex: Male

DRUGS (4)
  1. HUMIRA [Suspect]
     Active Substance: ADALIMUMAB
     Indication: RHEUMATOID ARTHRITIS
     Dates: start: 201407
  2. HYDROCODONE [Concomitant]
     Active Substance: HYDROCODONE
     Indication: PAIN
  3. IBUPROFEN. [Concomitant]
     Active Substance: IBUPROFEN
     Indication: PAIN
  4. CYMBALTA [Suspect]
     Active Substance: DULOXETINE HYDROCHLORIDE
     Indication: PRODUCT USED FOR UNKNOWN INDICATION

REACTIONS (11)
  - Headache [Recovered/Resolved]
  - Lip dry [Unknown]
  - Lethargy [Unknown]
  - Stomatitis [Not Recovered/Not Resolved]
  - Secretion discharge [Recovering/Resolving]
  - Rash pruritic [Recovered/Resolved]
  - Scab [Recovering/Resolving]
  - Burning sensation [Not Recovered/Not Resolved]
  - Rash papular [Recovering/Resolving]
  - Pyrexia [Unknown]
  - Middle insomnia [Unknown]

NARRATIVE: CASE EVENT DATE: 2014
